FAERS Safety Report 12779508 (Version 1)
Quarter: 2016Q3

REPORT INFORMATION
  Report Type: Spontaneous
  Country: US (occurrence: US)
  Receive Date: 20160922
  Receipt Date: 20160922
  Transmission Date: 20161109
  Serious: Yes (Hospitalization)
  Sender: FDA-Public Use
  Company Number: None

PATIENT
  Age: 70 Year
  Sex: Male
  Weight: 73 kg

DRUGS (1)
  1. SULFAMETHOXAZOLE/TRIMETHOPRIM [Suspect]
     Active Substance: SULFAMETHOXAZOLE\TRIMETHOPRIM
     Indication: URINARY TRACT INFECTION
     Dosage: 800/160MG BID PO
     Route: 048
     Dates: start: 20101216, end: 20101224

REACTIONS (11)
  - Tremor [None]
  - Leukocytosis [None]
  - Vomiting [None]
  - Pyrexia [None]
  - Nausea [None]
  - Abdominal pain upper [None]
  - Rash [None]
  - Hypophagia [None]
  - Dizziness [None]
  - Malaise [None]
  - Acute kidney injury [None]

NARRATIVE: CASE EVENT DATE: 20101224
